FAERS Safety Report 15445673 (Version 1)
Quarter: 2018Q3

REPORT INFORMATION
  Report Type: Spontaneous
  Country: US (occurrence: US)
  Receive Date: 20180928
  Receipt Date: 20180928
  Transmission Date: 20181010
  Serious: No
  Sender: FDA-Public Use
  Company Number: US-AMGEN-USASP2018068989

PATIENT
  Age: 78 Year
  Sex: Female

DRUGS (5)
  1. POTASSIUM [Concomitant]
     Active Substance: POTASSIUM
  2. CALCIUM [Concomitant]
     Active Substance: CALCIUM
  3. ELIQUIS [Concomitant]
     Active Substance: APIXABAN
  4. PROLIA [Suspect]
     Active Substance: DENOSUMAB
     Indication: OSTEOPOROSIS POSTMENOPAUSAL
     Dosage: UNK
     Route: 065
  5. VITAMIN D [Concomitant]
     Active Substance: CHOLECALCIFEROL

REACTIONS (6)
  - Injection site pruritus [Unknown]
  - Contusion [Unknown]
  - Hypersensitivity [Unknown]
  - Rash macular [Unknown]
  - Abscess [Unknown]
  - Formication [Unknown]

NARRATIVE: CASE EVENT DATE: 2017
